FAERS Safety Report 9841100 (Version 1)
Quarter: 2013Q4

REPORT INFORMATION
  Report Type: Spontaneous
  Country: US (occurrence: None)
  Receive Date: 20131223
  Receipt Date: 20131223
  Transmission Date: 20140711
  Serious: Yes (Other)
  Sender: FDA-Public Use
  Company Number: 221695LEO

PATIENT
  Age: 66 Year
  Sex: Female

DRUGS (4)
  1. PICATO [Suspect]
     Indication: ACTINIC KERATOSIS
     Route: 061
     Dates: start: 20130503
  2. LISINOPRIL/HCTZ [Concomitant]
  3. COLESTIPOL (COLESTIPOL) [Concomitant]
  4. IMITREX (SUMATRIPTAN) [Concomitant]

REACTIONS (2)
  - Application site erythema [None]
  - Application site pain [None]
